FAERS Safety Report 4909211-X (Version None)
Quarter: 2006Q1

REPORT INFORMATION
  Report Type: 
  Country: None (occurrence: None)
  Receive Date: 20060209
  Receipt Date: 20060209
  Transmission Date: 20060701
  Serious: Yes (Life-Threatening)
  Sender: FDA-Public Use
  Company Number: None

PATIENT
  Sex: Male
  Weight: 83.9154 kg

DRUGS (1)
  1. METFORMIN [Suspect]
     Indication: DIABETES MELLITUS NON-INSULIN-DEPENDENT
     Dosage: 1000 MG DAILY PO
     Route: 048
     Dates: start: 20050201, end: 20050207

REACTIONS (2)
  - GLYCOSYLATED HAEMOGLOBIN INCREASED [None]
  - PHARMACEUTICAL PRODUCT COMPLAINT [None]
